FAERS Safety Report 16121252 (Version 1)
Quarter: 2019Q1

REPORT INFORMATION
  Report Type: Spontaneous
  Country: GB (occurrence: GB)
  Receive Date: 20190327
  Receipt Date: 20190327
  Transmission Date: 20190418
  Serious: Yes (Other)
  Sender: FDA-Public Use
  Company Number: GB-ACCORD-115489

PATIENT
  Age: 22 Year
  Sex: Female

DRUGS (3)
  1. BRIVARACETAM [Concomitant]
     Active Substance: BRIVARACETAM
     Dosage: DISCONTINUED
  2. LAMOTRIGINE. [Concomitant]
     Active Substance: LAMOTRIGINE
     Dosage: DISCONTINUED
  3. LEVETIRACETAM. [Suspect]
     Active Substance: LEVETIRACETAM
     Indication: SEIZURE
     Dosage: 100MG/ML
     Route: 048
     Dates: start: 20180614

REACTIONS (1)
  - Limb discomfort [Not Recovered/Not Resolved]

NARRATIVE: CASE EVENT DATE: 20180616
